FAERS Safety Report 5426057-7 (Version None)
Quarter: 2007Q3

REPORT INFORMATION
  Report Type: 
  Country: None (occurrence: None)
  Receive Date: 20070824
  Receipt Date: 20070824
  Transmission Date: 20080115
  Serious: No
  Sender: FDA-Public Use
  Company Number: None

PATIENT
  Sex: Male
  Weight: 69.5 kg

DRUGS (2)
  1. DOXIL [Suspect]
     Dosage: 60 MG
  2. SENNA/DOCUSATE SODIUM [Concomitant]

REACTIONS (1)
  - NEUROPATHY PERIPHERAL [None]
